FAERS Safety Report 19498883 (Version 2)
Quarter: 2021Q3

REPORT INFORMATION
  Report Type: Spontaneous
  Country: CA (occurrence: CA)
  Receive Date: 20210706
  Receipt Date: 20210721
  Transmission Date: 20211014
  Serious: Yes (Life-Threatening, Other)
  Sender: FDA-Public Use
  Company Number: CA-PFIZER INC-05H-028-0292447-00

PATIENT
  Age: 55 Year
  Sex: Female
  Weight: 78 kg

DRUGS (2)
  1. BUPIVACAINE HCL [Suspect]
     Active Substance: BUPIVACAINE HYDROCHLORIDE
     Indication: PAIN MANAGEMENT
     Dosage: 50 MG
  2. BOTULINUM TOXIN TYPE A [Suspect]
     Active Substance: BOTULINUM TOXIN TYPE A
     Indication: PAIN MANAGEMENT
     Dosage: 100 IU

REACTIONS (5)
  - Aphonia [Recovered/Resolved with Sequelae]
  - Respiratory depression [Recovered/Resolved]
  - Respiratory arrest [Recovered/Resolved]
  - Hypotension [Recovered/Resolved]
  - Dysphonia [Recovered/Resolved]
